FAERS Safety Report 8921381 (Version 1)
Quarter: 2012Q4

REPORT INFORMATION
  Report Type: 
  Country: US (occurrence: US)
  Receive Date: 20121121
  Receipt Date: 20121121
  Transmission Date: 20130627
  Serious: Yes (Other)
  Sender: FDA-Public Use
  Company Number: US-JNJFOC-20121108242

PATIENT
  Sex: Female
  Weight: 48.99 kg

DRUGS (1)
  1. TOPAMAX [Suspect]
     Indication: BENIGN BREAST NEOPLASM
     Route: 048

REACTIONS (3)
  - Abnormal loss of weight [Recovered/Resolved]
  - Metabolic disorder [Not Recovered/Not Resolved]
  - Weight increased [Not Recovered/Not Resolved]
